APPROVED DRUG PRODUCT: POTASSIUM CHLORIDE
Active Ingredient: POTASSIUM CHLORIDE
Strength: 20MEQ
Dosage Form/Route: FOR SOLUTION;ORAL
Application: A210241 | Product #001 | TE Code: AA
Applicant: NOVEL LABORATORIES INC
Approved: Nov 21, 2018 | RLD: No | RS: No | Type: RX